FAERS Safety Report 23189050 (Version 1)
Quarter: 2023Q4

REPORT INFORMATION
  Report Type: Report from Study
  Country: US (occurrence: US)
  Receive Date: 20231115
  Receipt Date: 20231115
  Transmission Date: 20240110
  Serious: Yes (Other)
  Sender: FDA-Public Use
  Company Number: US-ABBVIE-5491154

PATIENT
  Age: 59 Year
  Sex: Male

DRUGS (1)
  1. HUMIRA [Suspect]
     Active Substance: ADALIMUMAB
     Indication: Ankylosing spondylitis
     Route: 058

REACTIONS (10)
  - Prostate cancer [Unknown]
  - Urinary incontinence [Unknown]
  - Escherichia infection [Unknown]
  - Spinal disorder [Unknown]
  - Pharyngeal operation [Unknown]
  - Arthralgia [Unknown]
  - Condition aggravated [Unknown]
  - Back pain [Unknown]
  - Postoperative wound infection [Unknown]
  - Anal incontinence [Unknown]

NARRATIVE: CASE EVENT DATE: 20221109
